FAERS Safety Report 11884113 (Version 1)
Quarter: 2016Q1

REPORT INFORMATION
  Report Type: Spontaneous
  Country: GB (occurrence: GB)
  Receive Date: 20160103
  Receipt Date: 20160103
  Transmission Date: 20160526
  Serious: Yes (Life-Threatening)
  Sender: FDA-Public Use
  Company Number: GB-TEVA-620338ACC

PATIENT
  Age: 59 Year
  Sex: Female
  Weight: 87 kg

DRUGS (4)
  1. TRIMETHOPRIM. [Concomitant]
     Active Substance: TRIMETHOPRIM
     Dosage: 2 DOSAGE FORMS DAILY;
     Dates: start: 20151107, end: 20151110
  2. LIDOCAINE. [Concomitant]
     Active Substance: LIDOCAINE
     Dosage: APPLY FOR 12 HOURS THEN REMOVE
     Dates: start: 20151120
  3. NITROFURANTOIN. [Suspect]
     Active Substance: NITROFURANTOIN
     Dates: start: 20151211
  4. COCODAMOL [Concomitant]
     Active Substance: ACETAMINOPHEN\CODEINE PHOSPHATE
     Dosage: 8 DOSAGE FORMS DAILY;
     Dates: start: 20151106, end: 20151113

REACTIONS (4)
  - Vomiting [Unknown]
  - Rash macular [Unknown]
  - Wheezing [Unknown]
  - Diarrhoea [Unknown]

NARRATIVE: CASE EVENT DATE: 20151211
